FAERS Safety Report 9355165 (Version 1)
Quarter: 2013Q2

REPORT INFORMATION
  Report Type: Spontaneous
  Country: US (occurrence: US)
  Receive Date: 20130619
  Receipt Date: 20130619
  Transmission Date: 20140414
  Serious: Yes (Hospitalization)
  Sender: FDA-Public Use
  Company Number: PHEH2013US012976

PATIENT
  Sex: Female

DRUGS (5)
  1. TEGRETOL [Suspect]
     Dosage: 800 MG (200 MG IN THE MORNING, 200 MG IN THE EVENING AND 400 MG AT NIGHT), , DAILY
  2. TEGRETOL [Suspect]
     Dosage: 600 MG, DAILY
  3. DILANTIN//PHENYTOIN [Concomitant]
     Dosage: 2 DF, DAILY
  4. LEVOTHYROXINE [Concomitant]
     Dosage: UNK
  5. KEPPRA [Concomitant]
     Dosage: UNK UKN, UNK

REACTIONS (2)
  - Balance disorder [Unknown]
  - Visual impairment [Unknown]
